FAERS Safety Report 16352569 (Version 1)
Quarter: 2019Q2

REPORT INFORMATION
  Report Type: Spontaneous
  Country: US (occurrence: US)
  Receive Date: 20190418
  Receipt Date: 20190418
  Transmission Date: 20190711
  Serious: No
  Sender: FDA-Public Use
  Company Number: None

PATIENT
  Age: 5 Month
  Sex: Female

DRUGS (1)
  1. VITRAKVI [Suspect]
     Active Substance: LAROTRECTINIB
     Indication: SOFT TISSUE SARCOMA
     Route: 048
     Dates: start: 20190123

REACTIONS (3)
  - Nausea [None]
  - Cough [None]
  - Pyrexia [None]

NARRATIVE: CASE EVENT DATE: 20190408
